FAERS Safety Report 18054211 (Version 1)
Quarter: 2020Q3

REPORT INFORMATION
  Report Type: Spontaneous
  Country: US (occurrence: US)
  Receive Date: 20200722
  Receipt Date: 20200722
  Transmission Date: 20201103
  Serious: No
  Sender: FDA-Public Use
  Company Number: US-ELI_LILLY_AND_COMPANY-US202006010290

PATIENT
  Age: 55 Year
  Sex: Female

DRUGS (3)
  1. TRULICITY [Suspect]
     Active Substance: DULAGLUTIDE
     Indication: PRODUCT USED FOR UNKNOWN INDICATION
     Dosage: 1.5 MG, UNKNOWN
     Route: 058
  2. HUMULIN R U?500 [Suspect]
     Active Substance: INSULIN HUMAN
     Indication: PRODUCT USED FOR UNKNOWN INDICATION
     Dosage: 145 U, EACH MORNING
     Route: 058
  3. HUMULIN R U?500 [Suspect]
     Active Substance: INSULIN HUMAN
     Dosage: 100 U, EACH EVENING
     Route: 058

REACTIONS (5)
  - Malaise [Unknown]
  - Oropharyngeal pain [Unknown]
  - Rhinorrhoea [Unknown]
  - Sinusitis [Unknown]
  - Cough [Unknown]

NARRATIVE: CASE EVENT DATE: 20200623
